FAERS Safety Report 4766620-X (Version None)
Quarter: 2005Q3

REPORT INFORMATION
  Report Type: 
  Country: None (occurrence: None)
  Receive Date: 20050908
  Receipt Date: 20050829
  Transmission Date: 20060218
  Serious: Yes (Life-Threatening)
  Sender: FDA-Public Use
  Company Number: MK200508-0364-1

PATIENT
  Age: 68 Year
  Sex: Male
  Weight: 99.3377 kg

DRUGS (1)
  1. NEUTROSPEC [Suspect]
     Indication: PYREXIA
     Dosage: 19.8 MCI, ONE TIME, IV
     Route: 042
     Dates: start: 20050825, end: 20050825

REACTIONS (5)
  - CARDIAC ARREST [None]
  - DISORIENTATION [None]
  - POST PROCEDURAL COMPLICATION [None]
  - RESPIRATORY ARREST [None]
  - SYNCOPE VASOVAGAL [None]
